FAERS Safety Report 6958261-0 (Version None)
Quarter: 2010Q3

REPORT INFORMATION
  Report Type: 
  Country: None (occurrence: None)
  Receive Date: 20100827
  Receipt Date: 20100827
  Transmission Date: 20110219
  Serious: Yes (Disabling)
  Sender: FDA-Public Use
  Company Number: None

PATIENT
  Sex: Male
  Weight: 129.2752 kg

DRUGS (1)
  1. PROCARDIA [Suspect]
     Indication: HYPERTENSION
     Dates: start: 19950305, end: 19950905

REACTIONS (1)
  - BLINDNESS [None]
